FAERS Safety Report 8309216-5 (Version None)
Quarter: 2012Q2

REPORT INFORMATION
  Report Type: 
  Country: None (occurrence: None)
  Receive Date: 20120424
  Receipt Date: 20120411
  Transmission Date: 20120825
  Serious: Yes (Other)
  Sender: FDA-Public Use
  Company Number: CHPA2012US009155

PATIENT
  Age: 70 Year
  Sex: Male

DRUGS (1)
  1. EXCEDRIN EXTRA STRENGTH TABLETS [Suspect]
     Indication: PAIN
     Dosage: UP TO 4, PRETTY MUCH EVERYDAY
     Route: 048

REACTIONS (3)
  - ROAD TRAFFIC ACCIDENT [None]
  - HEADACHE [None]
  - OFF LABEL USE [None]
